FAERS Safety Report 4708497-4 (Version None)
Quarter: 2005Q3

REPORT INFORMATION
  Report Type: 
  Country: None (occurrence: None)
  Receive Date: 20050705
  Receipt Date: 20050622
  Transmission Date: 20060218
  Serious: Yes (Other)
  Sender: FDA-Public Use
  Company Number: HQWYE543530MAR05

PATIENT
  Age: 30 Year
  Sex: Male

DRUGS (11)
  1. RAPAMUNE [Suspect]
     Indication: PROPHYLAXIS AGAINST TRANSPLANT REJECTION
     Dosage: 7 MG 1X PER 1 DAY ORAL
     Route: 048
     Dates: start: 20050302
  2. PREDNISONE [Suspect]
     Indication: PROPHYLAXIS AGAINST TRANSPLANT REJECTION
     Dosage: 20 MG 1X PER 1 DAY ORAL
     Route: 048
  3. PROGRAF [Suspect]
     Indication: PROPHYLAXIS AGAINST TRANSPLANT REJECTION
     Dosage: SEE IMAGE
     Route: 048
     Dates: start: 20050301, end: 20050101
  4. PROGRAF [Suspect]
     Indication: PROPHYLAXIS AGAINST TRANSPLANT REJECTION
     Dosage: SEE IMAGE
     Route: 048
     Dates: start: 20050101
  5. ZENAPAX [Suspect]
     Indication: PROPHYLAXIS AGAINST TRANSPLANT REJECTION
     Dosage: ORAL
     Route: 048
  6. NORVASC [Concomitant]
  7. METOPROLOL TARTRATE [Concomitant]
  8. FERROUS GLUCONATE        (FERROUS GLUCONATE) [Concomitant]
  9. SEPTRA [Concomitant]
  10. OMEGA 3 (FISH OIL) [Concomitant]
  11. COD-LIVER OIL ^VITAGLOW^ (COD-LIVER OIL) [Concomitant]

REACTIONS (1)
  - RENAL TUBULAR NECROSIS [None]
